FAERS Safety Report 5369294-2 (Version None)
Quarter: 2007Q2

REPORT INFORMATION
  Report Type: 
  Country: None (occurrence: None)
  Receive Date: 20070625
  Receipt Date: 20070319
  Transmission Date: 20071010
  Serious: No
  Sender: FDA-Public Use
  Company Number: US-ASTRAZENECA-2007UW03483

PATIENT
  Age: 52 Year
  Sex: Male
  Weight: 88.5 kg

DRUGS (2)
  1. CRESTOR [Suspect]
     Route: 048
     Dates: start: 20060101
  2. ASPIRIN [Concomitant]

REACTIONS (1)
  - LYMPHADENOPATHY [None]
